FAERS Safety Report 5032646-4 (Version None)
Quarter: 2006Q2

REPORT INFORMATION
  Report Type: 
  Country: None (occurrence: None)
  Receive Date: 20060622
  Receipt Date: 20060614
  Transmission Date: 20061013
  Serious: Yes (Other)
  Sender: FDA-Public Use
  Company Number: PHBS2006SE08848

PATIENT
  Age: 16 Year
  Sex: Female

DRUGS (5)
  1. VOLTAREN [Suspect]
     Dosage: 60 DF, ONCE/SINGLE
     Route: 048
  2. MIRTAZAPINE [Concomitant]
     Dosage: 30 DF, ONCE/SINGLE
     Route: 048
  3. TRADOLAN [Concomitant]
     Dosage: 10 TABLETS, ONCE/SINGLE
     Route: 048
  4. ZOLOFT [Concomitant]
     Indication: DEPRESSION
  5. LOSEC MUPS HP [Concomitant]
     Dosage: PERIODICALLY
     Route: 065

REACTIONS (3)
  - EPISTAXIS [None]
  - GASTROINTESTINAL HAEMORRHAGE [None]
  - OVERDOSE [None]
